FAERS Safety Report 9048674 (Version 4)
Quarter: 2014Q2

REPORT INFORMATION
  Report Type: Spontaneous
  Country: BR (occurrence: BR)
  Receive Date: 20130204
  Receipt Date: 20140422
  Transmission Date: 20141212
  Serious: Yes (Death, Other)
  Sender: FDA-Public Use
  Company Number: BR-PFIZER INC-2012303253

PATIENT
  Age: 59 Year
  Sex: Male
  Weight: 61 kg

DRUGS (9)
  1. SUTENT [Suspect]
     Indication: RENAL CELL CARCINOMA
     Dosage: 50 MG (1 CAPSULE), 1X/DAY, CYCLE 4 PER 2
     Route: 048
     Dates: start: 20121119, end: 20130709
  2. METFORMIN [Concomitant]
  3. AMLODIPINE [Concomitant]
     Dosage: 50 MG, 1X/DAY
     Route: 048
  4. GLIBENCLAMIDE [Concomitant]
  5. SIMVASTATIN [Concomitant]
  6. LOSARTAN [Concomitant]
     Dosage: 2 TABLETS OF 50MG (100MG) ONCE DAILY
     Route: 048
  7. DIMORF [Concomitant]
     Dosage: UNSPECIFIED DOSAGE, AS NEEDED
  8. DIPIRONE [Concomitant]
     Dosage: UNSPECIFIED DOSAGE, AS NEEDED
  9. PLASIL [Concomitant]
     Dosage: 1 DF, UNK

REACTIONS (16)
  - Infection [Fatal]
  - Bone disorder [Unknown]
  - Venous thrombosis [Unknown]
  - Intestinal haemorrhage [Unknown]
  - Pruritus [Unknown]
  - Skin exfoliation [Unknown]
  - Skin discolouration [Unknown]
  - Erythema [Unknown]
  - Stomatitis [Unknown]
  - Pyrexia [Unknown]
  - Nausea [Unknown]
  - Decreased appetite [Unknown]
  - Dyspepsia [Unknown]
  - Depression [Unknown]
  - Hypoglycaemia [Unknown]
  - Oedema peripheral [Not Recovered/Not Resolved]
